FAERS Safety Report 13034474 (Version 5)
Quarter: 2017Q2

REPORT INFORMATION
  Report Type: Spontaneous
  Country: US (occurrence: US)
  Receive Date: 20161216
  Receipt Date: 20170622
  Transmission Date: 20170830
  Serious: Yes (Hospitalization, Other)
  Sender: FDA-Public Use
  Company Number: US-ALLERGAN-1680583US

PATIENT
  Age: 70 Year
  Sex: Female
  Weight: 61.22 kg

DRUGS (2)
  1. LOTEMAX [Concomitant]
     Active Substance: LOTEPREDNOL ETABONATE
     Indication: PRODUCT USED FOR UNKNOWN INDICATION
     Dosage: UNK
     Route: 047
  2. RESTASIS [Suspect]
     Active Substance: CYCLOSPORINE
     Indication: DRY EYE
     Dosage: 2 GTT, TID
     Route: 047

REACTIONS (15)
  - Viral upper respiratory tract infection [Not Recovered/Not Resolved]
  - Agitation [Not Recovered/Not Resolved]
  - Vision blurred [Unknown]
  - Encephalitis [Unknown]
  - Memory impairment [Not Recovered/Not Resolved]
  - Corneal scar [Not Recovered/Not Resolved]
  - Gait disturbance [Not Recovered/Not Resolved]
  - Visual impairment [Not Recovered/Not Resolved]
  - Impaired work ability [Not Recovered/Not Resolved]
  - Macular degeneration [Not Recovered/Not Resolved]
  - Walking aid user [Not Recovered/Not Resolved]
  - Malaise [Not Recovered/Not Resolved]
  - Drug prescribing error [Unknown]
  - Dizziness [Recovered/Resolved]
  - Eye swelling [Not Recovered/Not Resolved]

NARRATIVE: CASE EVENT DATE: 2015
